FAERS Safety Report 5071889-0 (Version None)
Quarter: 2006Q3

REPORT INFORMATION
  Report Type: 
  Country: None (occurrence: None)
  Receive Date: 20060804
  Receipt Date: 20060731
  Transmission Date: 20061208
  Serious: Yes (Hospitalization)
  Sender: FDA-Public Use
  Company Number: US-BOEHRINGER INGELHEIM PHARMACEUTICALS, INC.-2006-BP-08767BP

PATIENT
  Sex: Male

DRUGS (1)
  1. FLOMAX [Suspect]
     Indication: BENIGN PROSTATIC HYPERPLASIA
     Route: 048

REACTIONS (7)
  - DYSPHAGIA [None]
  - FOREIGN BODY TRAUMA [None]
  - GALLBLADDER OPERATION [None]
  - GASTRIC DISORDER [None]
  - HYPOTENSION [None]
  - STOMACH DISCOMFORT [None]
  - SYNCOPE [None]
